FAERS Safety Report 8949483 (Version 1)
Quarter: 2012Q4

REPORT INFORMATION
  Report Type: Report from Study
  Country: NL (occurrence: NL)
  Receive Date: 20121206
  Receipt Date: 20121206
  Transmission Date: 20130627
  Serious: Yes (Hospitalization)
  Sender: FDA-Public Use
  Company Number: NL-ABBOTT-12P-114-1015587-00

PATIENT
  Age: 0 Year
  Sex: Female
  Weight: 5.18 kg

DRUGS (3)
  1. SYNAGIS [Suspect]
     Indication: PREMATURE BABY
     Route: 030
     Dates: start: 20120903, end: 20120903
  2. SYNAGIS [Suspect]
     Route: 030
     Dates: start: 20121029, end: 20121029
  3. SYNAGIS [Suspect]
     Route: 030
     Dates: start: 20121126, end: 20121126

REACTIONS (4)
  - Dehydration [Recovered/Resolved]
  - Diarrhoea [Recovering/Resolving]
  - Pyrexia [Recovered/Resolved]
  - Adenovirus infection [Recovering/Resolving]
